FAERS Safety Report 9432908 (Version 3)
Quarter: 2013Q3

REPORT INFORMATION
  Report Type: Spontaneous
  Country: US (occurrence: US)
  Receive Date: 20130731
  Receipt Date: 20130822
  Transmission Date: 20140515
  Serious: Yes (Hospitalization)
  Sender: FDA-Public Use
  Company Number: US-GILEAD-2013-0080465

PATIENT
  Sex: Female

DRUGS (3)
  1. LETAIRIS [Suspect]
     Indication: PULMONARY ARTERIAL HYPERTENSION
     Dosage: 10 MG, QD
     Route: 048
     Dates: start: 20080702
  2. REVATIO [Concomitant]
  3. REMODULIN [Concomitant]

REACTIONS (4)
  - Renal disorder [Unknown]
  - Pulmonary oedema [Unknown]
  - Dyspnoea [Unknown]
  - Swelling [Unknown]
